FAERS Safety Report 4472700-9 (Version None)
Quarter: 2004Q4

REPORT INFORMATION
  Report Type: 
  Country: None (occurrence: None)
  Receive Date: 20041012
  Receipt Date: 20041012
  Transmission Date: 20050328
  Serious: Yes (Hospitalization)
  Sender: FDA-Public Use
  Company Number: None

PATIENT
  Age: 25 Year
  Sex: Female
  Weight: 84.2 kg

DRUGS (5)
  1. ADALIMUMAB [Suspect]
     Indication: CROHN'S DISEASE
     Route: 065
     Dates: start: 20031203
  2. METHOTREXATE [Concomitant]
  3. PREDNISONE TAB [Concomitant]
  4. SERTRALINE HCL [Concomitant]
  5. RISEDRONATE [Concomitant]

REACTIONS (4)
  - BACK PAIN [None]
  - CHILLS [None]
  - HEADACHE [None]
  - NAUSEA [None]
